FAERS Safety Report 10730639 (Version 1)
Quarter: 2015Q1

REPORT INFORMATION
  Report Type: Spontaneous
  Country: GB (occurrence: GB)
  Receive Date: 20150122
  Receipt Date: 20150122
  Transmission Date: 20150721
  Serious: Yes (Hospitalization, Other)
  Sender: FDA-Public Use
  Company Number: PHHY2015GB005133

PATIENT
  Sex: Female

DRUGS (6)
  1. DIAZEPAM. [Suspect]
     Active Substance: DIAZEPAM
     Dosage: 3 MG, QD
     Route: 065
     Dates: start: 2014, end: 2014
  2. LEVETIRACETAM. [Concomitant]
     Active Substance: LEVETIRACETAM
     Indication: PRODUCT USED FOR UNKNOWN INDICATION
     Dosage: 1500 MG, BID
     Route: 065
  3. DIAZEPAM. [Suspect]
     Active Substance: DIAZEPAM
     Dosage: 2 MG, QID
     Route: 065
     Dates: start: 2014, end: 2014
  4. TEMAZEPAM. [Suspect]
     Active Substance: TEMAZEPAM
     Indication: PRODUCT USED FOR UNKNOWN INDICATION
     Dosage: UNK TOOK FOR AROUND TWO MONTHS
     Route: 065
     Dates: start: 2014, end: 2014
  5. ASPIRIN. [Concomitant]
     Active Substance: ASPIRIN
     Indication: PRODUCT USED FOR UNKNOWN INDICATION
     Dosage: UKN
     Route: 065
  6. DIAZEPAM. [Suspect]
     Active Substance: DIAZEPAM
     Indication: PRODUCT USED FOR UNKNOWN INDICATION
     Dosage: 12 MG, QD
     Route: 065
     Dates: start: 2014, end: 2014

REACTIONS (16)
  - Weight decreased [Unknown]
  - Sleep disorder [Unknown]
  - Eating disorder [Unknown]
  - Condition aggravated [Unknown]
  - Memory impairment [Unknown]
  - Stress [Unknown]
  - Visual impairment [Unknown]
  - Seizure [Unknown]
  - Haemoptysis [Unknown]
  - Madarosis [Unknown]
  - Diarrhoea [Unknown]
  - Throat tightness [Unknown]
  - Onychomadesis [Unknown]
  - Abdominal discomfort [Unknown]
  - Alopecia [Unknown]
  - Palpitations [Unknown]

NARRATIVE: CASE EVENT DATE: 2014
